FAERS Safety Report 20828773 (Version 1)
Quarter: 2022Q2

REPORT INFORMATION
  Report Type: Spontaneous
  Country: US (occurrence: US)
  Receive Date: 20220513
  Receipt Date: 20220513
  Transmission Date: 20220721
  Serious: No
  Sender: FDA-Public Use
  Company Number: US-Eisai Medical Research-EC-2022-114487

PATIENT
  Age: 6 Year
  Sex: Female

DRUGS (3)
  1. BANZEL [Suspect]
     Active Substance: RUFINAMIDE
     Indication: Generalised tonic-clonic seizure
     Dosage: 14 MG AT NIGHT AND 13 MG IN MORNING
     Route: 048
  2. BANZEL [Suspect]
     Active Substance: RUFINAMIDE
     Dosage: 12 MG AT NIGHT AND 11 MG IN MORNING
     Route: 048
     Dates: start: 2022
  3. LAMICTAL [Concomitant]
     Active Substance: LAMOTRIGINE
     Indication: Generalised tonic-clonic seizure
     Dosage: DOSE AND FREQUENCY UNKNOWN
     Route: 065

REACTIONS (2)
  - Drug level increased [Unknown]
  - Seizure [Recovering/Resolving]

NARRATIVE: CASE EVENT DATE: 20220101
